FAERS Safety Report 5333972-1 (Version None)
Quarter: 2007Q2

REPORT INFORMATION
  Report Type: 
  Country: None (occurrence: None)
  Receive Date: 20070524
  Receipt Date: 20070514
  Transmission Date: 20071010
  Serious: Yes (Other)
  Sender: FDA-Public Use
  Company Number: US-PFIZER INC-2007026641

PATIENT
  Sex: Female
  Weight: 59.9 kg

DRUGS (2)
  1. CHANTIX [Suspect]
     Indication: SMOKING CESSATION THERAPY
     Dates: start: 20070201, end: 20070301
  2. VITAMINS [Concomitant]

REACTIONS (9)
  - AGGRESSION [None]
  - ANAEMIA [None]
  - ANXIETY [None]
  - BLOOD PRESSURE INCREASED [None]
  - HALLUCINATION, TACTILE [None]
  - HEPATIC PAIN [None]
  - RENAL DISORDER [None]
  - RENAL PAIN [None]
  - URINE OUTPUT DECREASED [None]
